FAERS Safety Report 5737500-8 (Version None)
Quarter: 2008Q2

REPORT INFORMATION
  Report Type: 
  Country: None (occurrence: None)
  Receive Date: 20080512
  Receipt Date: 20080512
  Transmission Date: 20081010
  Serious: Yes (Other)
  Sender: FDA-Public Use
  Company Number: None

PATIENT
  Sex: Male
  Weight: 79.3795 kg

DRUGS (2)
  1. ADVAIR DISKUS 500/50 [Suspect]
     Dosage: 500/50 2 PUFF DAILY INHALE
     Route: 055
     Dates: start: 20060101, end: 20060301
  2. SPIRIVA [Suspect]
     Dosage: 18MCG CP 1 PUFFDAILY INHALE
     Route: 055
     Dates: start: 20060101, end: 20060301

REACTIONS (7)
  - ASTHMA [None]
  - BLISTER [None]
  - CONDITION AGGRAVATED [None]
  - DRUG INEFFECTIVE [None]
  - DYSPHAGIA [None]
  - MEDICAL DEVICE COMPLICATION [None]
  - WEIGHT DECREASED [None]
